FAERS Safety Report 20478833 (Version 1)
Quarter: 2022Q1

REPORT INFORMATION
  Report Type: Report from Study
  Country: JP (occurrence: JP)
  Receive Date: 20220216
  Receipt Date: 20220216
  Transmission Date: 20220423
  Serious: Yes (Hospitalization, Other)
  Sender: FDA-Public Use
  Company Number: JP-NOVARTISPH-NVSJ2020JP016479

PATIENT
  Age: 8 Year
  Sex: Female
  Weight: 27.8 kg

DRUGS (31)
  1. ILARIS [Suspect]
     Active Substance: CANAKINUMAB
     Indication: Still^s disease
     Dosage: 111 MG
     Route: 058
     Dates: start: 20190110
  2. ILARIS [Suspect]
     Active Substance: CANAKINUMAB
     Dosage: 111 MG
     Route: 058
     Dates: start: 20190207
  3. ILARIS [Suspect]
     Active Substance: CANAKINUMAB
     Dosage: 112.5 MG
     Route: 058
     Dates: start: 20190314
  4. ILARIS [Suspect]
     Active Substance: CANAKINUMAB
     Dosage: 114 MG
     Route: 058
     Dates: start: 20190418
  5. ILARIS [Suspect]
     Active Substance: CANAKINUMAB
     Dosage: 120 MG
     Route: 058
     Dates: start: 20190516
  6. ILARIS [Suspect]
     Active Substance: CANAKINUMAB
     Dosage: 118.5 MG
     Route: 058
     Dates: start: 20190613
  7. ILARIS [Suspect]
     Active Substance: CANAKINUMAB
     Dosage: 114 MG
     Route: 058
     Dates: start: 20190711
  8. ILARIS [Suspect]
     Active Substance: CANAKINUMAB
     Dosage: 114 MG
     Route: 058
     Dates: start: 20190808
  9. ILARIS [Suspect]
     Active Substance: CANAKINUMAB
     Dosage: 117 MG
     Route: 058
     Dates: start: 20190905
  10. ILARIS [Suspect]
     Active Substance: CANAKINUMAB
     Dosage: 116 MG
     Route: 058
     Dates: start: 20191003
  11. ILARIS [Suspect]
     Active Substance: CANAKINUMAB
     Dosage: 115.5 MG
     Route: 058
     Dates: start: 20191030
  12. ILARIS [Suspect]
     Active Substance: CANAKINUMAB
     Dosage: 112.5 MG
     Route: 058
     Dates: start: 20191128
  13. ILARIS [Suspect]
     Active Substance: CANAKINUMAB
     Dosage: 116 MG
     Route: 058
     Dates: start: 20191226
  14. ILARIS [Suspect]
     Active Substance: CANAKINUMAB
     Dosage: 117 MG
     Route: 058
     Dates: start: 20200123
  15. ILARIS [Suspect]
     Active Substance: CANAKINUMAB
     Dosage: 114 MG
     Route: 058
     Dates: start: 20200227
  16. ILARIS [Suspect]
     Active Substance: CANAKINUMAB
     Dosage: 120 MG
     Route: 058
     Dates: start: 20200326
  17. ILARIS [Suspect]
     Active Substance: CANAKINUMAB
     Dosage: 122 MG
     Route: 058
     Dates: start: 20200423
  18. ILARIS [Suspect]
     Active Substance: CANAKINUMAB
     Dosage: 123 MG
     Route: 058
     Dates: start: 20200521
  19. ILARIS [Suspect]
     Active Substance: CANAKINUMAB
     Dosage: 126 MG
     Route: 058
     Dates: start: 20200618
  20. ILARIS [Suspect]
     Active Substance: CANAKINUMAB
     Dosage: 128 MG
     Route: 058
     Dates: start: 20200716
  21. ILARIS [Suspect]
     Active Substance: CANAKINUMAB
     Dosage: 128 MG
     Route: 058
     Dates: start: 20200813
  22. ILARIS [Suspect]
     Active Substance: CANAKINUMAB
     Dosage: 132 MG
     Route: 058
     Dates: start: 20200917
  23. ILARIS [Suspect]
     Active Substance: CANAKINUMAB
     Dosage: 135 MG
     Route: 058
     Dates: start: 20201015
  24. ILARIS [Suspect]
     Active Substance: CANAKINUMAB
     Dosage: 138 MG
     Route: 058
     Dates: start: 20201112
  25. ILARIS [Suspect]
     Active Substance: CANAKINUMAB
     Dosage: 135 MG
     Route: 058
     Dates: start: 20201210
  26. ILARIS [Suspect]
     Active Substance: CANAKINUMAB
     Dosage: 135 MG
     Route: 058
     Dates: start: 20210107
  27. MEPTIN MINITAB [Concomitant]
     Indication: Product used for unknown indication
     Dosage: 50 UG
     Route: 048
     Dates: start: 20190401, end: 20190410
  28. MONTELUKAST [Concomitant]
     Active Substance: MONTELUKAST SODIUM
     Indication: Product used for unknown indication
     Dosage: 5 MG
     Route: 048
     Dates: start: 20190401, end: 20190410
  29. NASONEX [Concomitant]
     Active Substance: MOMETASONE FUROATE
     Indication: Product used for unknown indication
     Dosage: 100 UG
     Route: 065
     Dates: start: 20190314, end: 20190331
  30. CARBOCYSTEINE [Concomitant]
     Active Substance: CARBOCYSTEINE
     Indication: Product used for unknown indication
     Dosage: 500 MG
     Route: 048
     Dates: start: 20190401, end: 20190410
  31. FAMOTIDINE [Concomitant]
     Active Substance: FAMOTIDINE
     Indication: Product used for unknown indication
     Dosage: 10 MG
     Route: 048
     Dates: start: 20190403, end: 20190424

REACTIONS (22)
  - Haemophagocytic lymphohistiocytosis [Recovered/Resolved]
  - White blood cell count decreased [Unknown]
  - Platelet count decreased [Unknown]
  - Serum ferritin increased [Unknown]
  - Lymphadenopathy [Unknown]
  - Splenomegaly [Unknown]
  - Viral infection [Recovered/Resolved]
  - Pyrexia [Recovered/Resolved]
  - Cough [Unknown]
  - Asthma [Recovering/Resolving]
  - Concomitant disease progression [Recovering/Resolving]
  - Wheezing [Unknown]
  - Productive cough [Unknown]
  - Alopecia [Recovering/Resolving]
  - Stress [Unknown]
  - Rhinitis allergic [Recovering/Resolving]
  - Urticaria [Recovered/Resolved]
  - Eczema [Recovering/Resolving]
  - Asteatosis [Recovering/Resolving]
  - Upper respiratory tract inflammation [Recovered/Resolved]
  - Urticaria [Recovered/Resolved]
  - Nasopharyngitis [Unknown]

NARRATIVE: CASE EVENT DATE: 20190110
